FAERS Safety Report 7301782-1 (Version None)
Quarter: 2011Q1

REPORT INFORMATION
  Report Type: 
  Country: None (occurrence: None)
  Receive Date: 20110218
  Receipt Date: 20110214
  Transmission Date: 20110831
  Serious: Yes (Other)
  Sender: FDA-Public Use
  Company Number: A0914082A

PATIENT
  Age: 26 Year
  Sex: Female

DRUGS (5)
  1. TRUVADA [Suspect]
     Indication: ANTIVIRAL TREATMENT
     Dosage: 1TAB PER DAY
     Route: 048
     Dates: start: 20070701, end: 20101014
  2. REYATAZ [Suspect]
     Indication: ANTIVIRAL TREATMENT
     Dosage: 300MGD PER DAY
     Route: 048
     Dates: start: 20070701, end: 20101111
  3. NORVIR [Suspect]
     Indication: ANTIVIRAL TREATMENT
     Dosage: 100MGD PER DAY
     Route: 048
     Dates: start: 20070701, end: 20101111
  4. COMBIVIR [Suspect]
     Indication: ANTIVIRAL TREATMENT
     Dosage: 2TAB PER DAY
     Route: 048
     Dates: start: 20101015
  5. KALETRA [Suspect]
     Indication: ANTIVIRAL TREATMENT
     Dosage: 4TAB PER DAY
     Route: 048
     Dates: start: 20101112

REACTIONS (3)
  - PREMATURE RUPTURE OF MEMBRANES [None]
  - DRUG EXPOSURE DURING PREGNANCY [None]
  - ABORTION SPONTANEOUS [None]
